FAERS Safety Report 16163696 (Version 1)
Quarter: 2019Q2

REPORT INFORMATION
  Report Type: Spontaneous
  Country: AE (occurrence: AE)
  Receive Date: 20190405
  Receipt Date: 20190405
  Transmission Date: 20190711
  Serious: Yes (Life-Threatening, Hospitalization, Other)
  Sender: FDA-Public Use
  Company Number: AE-009507513-1903ARE012033

PATIENT
  Age: 40 Year
  Sex: Male

DRUGS (3)
  1. AMLODIPINE [Concomitant]
     Active Substance: AMLODIPINE BESYLATE
  2. JANUMET [Suspect]
     Active Substance: METFORMIN HYDROCHLORIDE\SITAGLIPTIN PHOSPHATE
     Indication: TYPE 2 DIABETES MELLITUS
     Dosage: 2 TABLETS PER DAY
     Route: 048
  3. INSULIN [Concomitant]
     Active Substance: INSULIN NOS

REACTIONS (2)
  - Hypoglycaemia [Recovered/Resolved]
  - Electrolyte imbalance [Recovered/Resolved]
